FAERS Safety Report 15328222 (Version 1)
Quarter: 2018Q3

REPORT INFORMATION
  Report Type: Spontaneous
  Country: SG (occurrence: SG)
  Receive Date: 20180829
  Receipt Date: 20180829
  Transmission Date: 20181010
  Serious: Yes (Other)
  Sender: FDA-Public Use
  Company Number: SG-CONCORDIA PHARMACEUTICALS INC.-GSH201808-003118

PATIENT
  Age: 55 Year
  Sex: Male

DRUGS (2)
  1. EZETIMIBE. [Suspect]
     Active Substance: EZETIMIBE
  2. ALFUZOSIN [Suspect]
     Active Substance: ALFUZOSIN

REACTIONS (2)
  - Transplant rejection [Unknown]
  - Drug-induced liver injury [Unknown]
